FAERS Safety Report 20196768 (Version 1)
Quarter: 2021Q4

REPORT INFORMATION
  Report Type: Spontaneous
  Country: US (occurrence: US)
  Receive Date: 20211216
  Receipt Date: 20211216
  Transmission Date: 20220303
  Serious: Yes (Death, Hospitalization)
  Sender: FDA-Public Use
  Company Number: US-STRIDES ARCOLAB LIMITED-2021SP031074

PATIENT
  Age: 64 Year
  Sex: Female

DRUGS (27)
  1. TACROLIMUS [Suspect]
     Active Substance: TACROLIMUS
     Indication: Prophylaxis against graft versus host disease
     Dosage: UNK
     Route: 065
     Dates: start: 2019
  2. MYCOPHENOLATE MOFETIL [Suspect]
     Active Substance: MYCOPHENOLATE MOFETIL
     Indication: Prophylaxis against graft versus host disease
     Dosage: UNK
     Route: 065
     Dates: start: 2019
  3. PREDNISOLONE [Suspect]
     Active Substance: PREDNISOLONE
     Indication: Prophylaxis against graft versus host disease
     Dosage: 35 MG/DAY (0.5 MG/KG); UNK
     Route: 065
     Dates: start: 201911
  4. RITUXIMAB [Suspect]
     Active Substance: RITUXIMAB
     Indication: Acute lymphocytic leukaemia
     Dosage: UNK
     Route: 065
     Dates: start: 2018
  5. BLINATUMOMAB [Suspect]
     Active Substance: BLINATUMOMAB
     Indication: Acute lymphocytic leukaemia
     Dosage: UNK
     Route: 065
     Dates: start: 20181212
  6. INOTUZUMAB OZOGAMICIN [Suspect]
     Active Substance: INOTUZUMAB OZOGAMICIN
     Indication: Acute lymphocytic leukaemia
     Dosage: UNK
     Route: 065
     Dates: start: 20190409
  7. CYCLOPHOSPHAMIDE [Suspect]
     Active Substance: CYCLOPHOSPHAMIDE
     Indication: Acute lymphocytic leukaemia
     Dosage: UNK
     Route: 065
     Dates: start: 20190409
  8. CYCLOPHOSPHAMIDE [Suspect]
     Active Substance: CYCLOPHOSPHAMIDE
     Indication: Bone marrow conditioning regimen
     Dosage: UNK
     Route: 065
     Dates: start: 2019
  9. VINCRISTINE [Suspect]
     Active Substance: VINCRISTINE
     Indication: Acute lymphocytic leukaemia
     Dosage: UNK
     Route: 065
     Dates: start: 20190409
  10. RUXOLITINIB [Suspect]
     Active Substance: RUXOLITINIB
     Indication: Prophylaxis against graft versus host disease
     Dosage: 10 MILLIGRAM, BID
     Route: 065
     Dates: start: 201911
  11. SIROLIMUS [Suspect]
     Active Substance: SIROLIMUS
     Indication: Prophylaxis against graft versus host disease
     Dosage: UNK
     Route: 065
  12. DEXAMETHASONE [Suspect]
     Active Substance: DEXAMETHASONE
     Indication: Acute lymphocytic leukaemia
     Dosage: UNK
     Route: 065
     Dates: start: 20190409
  13. FLUDARABINE [Suspect]
     Active Substance: FLUDARABINE PHOSPHATE
     Indication: Bone marrow conditioning regimen
     Dosage: UNK
     Route: 065
     Dates: start: 2019
  14. ECULIZUMAB [Suspect]
     Active Substance: ECULIZUMAB
     Indication: Thrombotic microangiopathy
     Dosage: 4 WEEKLY DOSES OF ECULIZUMAB 900MG; UNK
     Route: 065
  15. ATOVAQUONE [Concomitant]
     Active Substance: ATOVAQUONE
     Indication: Prophylaxis
     Dosage: 1500 MILLIGRAM; PER DAY
     Route: 065
     Dates: start: 201809
  16. ATOVAQUONE [Concomitant]
     Active Substance: ATOVAQUONE
     Indication: Babesiosis
     Dosage: 750 MILLIGRAM, BID
     Route: 065
     Dates: start: 20190718, end: 20191013
  17. ATOVAQUONE [Concomitant]
     Active Substance: ATOVAQUONE
     Dosage: 1500 MILLIGRAM; PER DAY
     Route: 065
  18. AZITHROMYCIN [Concomitant]
     Active Substance: AZITHROMYCIN
     Indication: Babesiosis
     Dosage: 1 GRAM; PER DAY
     Route: 048
     Dates: start: 20190718, end: 20191013
  19. AZITHROMYCIN [Concomitant]
     Active Substance: AZITHROMYCIN
     Dosage: 500 MILLIGRAM; PER DAY
     Route: 048
  20. ATOVAQUONE;PROGUANIL [Concomitant]
     Indication: Babesiosis
     Dosage: 1 TABLETS PER DAY
     Route: 065
     Dates: start: 20190725
  21. ATOVAQUONE;PROGUANIL [Concomitant]
     Dosage: 4 TABLETS PER DAY
     Route: 065
  22. COTRIMOXAZOLE [Concomitant]
     Active Substance: SULFAMETHOXAZOLE\TRIMETHOPRIM
     Indication: Prophylaxis
     Dosage: UNK
     Route: 065
     Dates: start: 20191104, end: 20191111
  23. CLINDAMYCIN [Concomitant]
     Active Substance: CLINDAMYCIN
     Indication: Pyrexia
     Dosage: 600 MILLIGRAM, TID
     Route: 042
  24. CLINDAMYCIN [Concomitant]
     Active Substance: CLINDAMYCIN
     Dosage: 600 MILLIGRAM, TID
     Route: 042
  25. ACYCLOVIR [Concomitant]
     Active Substance: ACYCLOVIR
     Indication: Prophylaxis
     Dosage: UNK
     Route: 065
  26. VORICONAZOLE [Concomitant]
     Active Substance: VORICONAZOLE
     Indication: Prophylaxis
     Dosage: UNK
     Route: 065
  27. DEFIBROTIDE [Concomitant]
     Active Substance: DEFIBROTIDE (BOVINE)
     Indication: Venoocclusive liver disease
     Dosage: UNK
     Route: 065

REACTIONS (8)
  - Babesiosis [Fatal]
  - Disease recurrence [Fatal]
  - Thrombotic microangiopathy [Unknown]
  - Delayed engraftment [Unknown]
  - Escherichia infection [Unknown]
  - Staphylococcal infection [Unknown]
  - Spontaneous bacterial peritonitis [Unknown]
  - Off label use [Unknown]

NARRATIVE: CASE EVENT DATE: 20191101
